FAERS Safety Report 16184817 (Version 1)
Quarter: 2019Q2

REPORT INFORMATION
  Report Type: Spontaneous
  Country: US (occurrence: US)
  Receive Date: 20190411
  Receipt Date: 20190411
  Transmission Date: 20190711
  Serious: No
  Sender: FDA-Public Use
  Company Number: US-BAUSCH-BL-2018-020249

PATIENT
  Age: 65 Year
  Sex: Female
  Weight: 59.02 kg

DRUGS (6)
  1. SULFASALAZINE. [Concomitant]
     Active Substance: SULFASALAZINE
     Indication: PRODUCT USED FOR UNKNOWN INDICATION
  2. ALREX [Suspect]
     Active Substance: LOTEPREDNOL ETABONATE
     Indication: DRY EYE
     Dosage: AS NEEDED
     Route: 047
     Dates: start: 2017
  3. TYLENOL [Concomitant]
     Active Substance: ACETAMINOPHEN
     Indication: PRODUCT USED FOR UNKNOWN INDICATION
  4. ALREX [Suspect]
     Active Substance: LOTEPREDNOL ETABONATE
     Indication: EYE IRRITATION
  5. MESALAMINE. [Concomitant]
     Active Substance: MESALAMINE
     Indication: PRODUCT USED FOR UNKNOWN INDICATION
  6. ALREX [Suspect]
     Active Substance: LOTEPREDNOL ETABONATE
     Indication: OFF LABEL USE

REACTIONS (2)
  - Intraocular pressure increased [Not Recovered/Not Resolved]
  - Off label use [Not Recovered/Not Resolved]

NARRATIVE: CASE EVENT DATE: 2017
